FAERS Safety Report 6998567-2 (Version None)
Quarter: 2010Q3

REPORT INFORMATION
  Report Type: 
  Country: None (occurrence: None)
  Receive Date: 20100920
  Receipt Date: 20100726
  Transmission Date: 20110219
  Serious: No
  Sender: FDA-Public Use
  Company Number: US-ASTRAZENECA-2010SE34796

PATIENT
  Sex: Female
  Weight: 59 kg

DRUGS (1)
  1. SEROQUEL XR [Suspect]
     Indication: INSOMNIA
     Route: 048

REACTIONS (10)
  - ABDOMINAL DISCOMFORT [None]
  - BREAST DISCHARGE [None]
  - GAIT DISTURBANCE [None]
  - HYPERHIDROSIS [None]
  - HYPOAESTHESIA [None]
  - INSOMNIA [None]
  - MENSTRUAL DISORDER [None]
  - MYALGIA [None]
  - PARAESTHESIA [None]
  - SALIVARY HYPERSECRETION [None]
